FAERS Safety Report 5503116-1 (Version None)
Quarter: 2007Q4

REPORT INFORMATION
  Report Type: 
  Country: None (occurrence: None)
  Receive Date: 20071029
  Receipt Date: 20071029
  Transmission Date: 20080405
  Serious: Yes (Other)
  Sender: FDA-Public Use
  Company Number: None

PATIENT
  Age: 42 Year
  Sex: Male
  Weight: 102.0593 kg

DRUGS (1)
  1. CHORIONIC GONADOTROPIN [Suspect]
     Indication: WEIGHT CONTROL
     Dosage: 1 CC  2 X PER DAY  SL
     Route: 060
     Dates: start: 20070815, end: 20070915

REACTIONS (1)
  - PHARMACEUTICAL PRODUCT COMPLAINT [None]
